FAERS Safety Report 5740727-2 (Version None)
Quarter: 2008Q2

REPORT INFORMATION
  Report Type: 
  Country: None (occurrence: None)
  Receive Date: 20080516
  Receipt Date: 20080508
  Transmission Date: 20081010
  Serious: Yes (Disabling, Other)
  Sender: FDA-Public Use
  Company Number: JP-PFIZER INC-2008040362

PATIENT
  Age: 67 Year
  Sex: Male

DRUGS (11)
  1. LIPITOR [Suspect]
     Indication: HYPERCHOLESTEROLAEMIA
     Dosage: DAILY DOSE:10MG
     Route: 048
     Dates: start: 20080402, end: 20080405
  2. LASIX [Concomitant]
     Route: 048
  3. VALSARTAN [Concomitant]
     Route: 048
  4. TAKEPRON [Concomitant]
     Route: 048
  5. ALLOPURINOL [Concomitant]
     Route: 048
  6. ASPIRIN [Concomitant]
     Route: 048
  7. PANALDINE [Concomitant]
     Route: 048
  8. ARTIST [Concomitant]
     Route: 048
  9. CALCIUM POLYSTYRENE SULFONATE [Concomitant]
     Route: 048
  10. NORVASC [Concomitant]
     Route: 048
  11. EPOGIN [Concomitant]
     Route: 042

REACTIONS (3)
  - ASTHENIA [None]
  - BEDRIDDEN [None]
  - MYOPATHY [None]
